FAERS Safety Report 18648758 (Version 1)
Quarter: 2020Q4

REPORT INFORMATION
  Report Type: Spontaneous
  Country: US (occurrence: US)
  Receive Date: 20201221
  Receipt Date: 20201221
  Transmission Date: 20210114
  Serious: No
  Sender: FDA-Public Use
  Company Number: None

PATIENT
  Age: 56 Year
  Sex: Female

DRUGS (1)
  1. PIPERACILLIN/TAZOBACTAM (PIPERACILLIN NA 2GM/TAZOBACTAM NA 0.25ML [Suspect]
     Active Substance: PIPERACILLIN SODIUM\TAZOBACTAM SODIUM
     Dosage: ?          OTHER STRENGTH:2GM, 0.25GM/50ML;?
     Dates: start: 20201021

REACTIONS (2)
  - Anaphylactic reaction [None]
  - Cardio-respiratory arrest [None]

NARRATIVE: CASE EVENT DATE: 20201021
